FAERS Safety Report 5637248-4 (Version None)
Quarter: 2008Q1

REPORT INFORMATION
  Report Type: 
  Country: None (occurrence: None)
  Receive Date: 20080225
  Receipt Date: 20070919
  Transmission Date: 20080703
  Serious: No
  Sender: FDA-Public Use
  Company Number: US-BRISTOL-MYERS SQUIBB COMPANY-13841911

PATIENT
  Age: 48 Year
  Sex: Female
  Weight: 59 kg

DRUGS (2)
  1. KENALOG [Suspect]
     Indication: MACULAR OEDEMA
     Dosage: FIRST INJECTION ON 24-JAN-2007 AND SECOND  INJECTION GIVEN INTRAVITREOUS ON 20-MAR-2007
     Route: 058
     Dates: start: 20070124
  2. ZESTRIL [Concomitant]

REACTIONS (2)
  - EYELID PTOSIS [None]
  - SWELLING [None]
